FAERS Safety Report 13105244 (Version 9)
Quarter: 2018Q1

REPORT INFORMATION
  Report Type: Report from Study
  Country: US (occurrence: US)
  Receive Date: 20170111
  Receipt Date: 20180326
  Transmission Date: 20180508
  Serious: Yes (Hospitalization)
  Sender: FDA-Public Use
  Company Number: US-EISAI MEDICAL RESEARCH-EC-2017-023850

PATIENT
  Age: 55 Year
  Sex: Female
  Weight: 64 kg

DRUGS (9)
  1. LENVIMA [Suspect]
     Active Substance: LENVATINIB
     Route: 048
     Dates: start: 20170104, end: 20170201
  2. LENVIMA [Suspect]
     Active Substance: LENVATINIB
     Route: 048
     Dates: start: 20171003, end: 20171012
  3. LENVIMA [Suspect]
     Active Substance: LENVATINIB
     Route: 048
     Dates: start: 2017, end: 20171002
  4. AFINITOR [Suspect]
     Active Substance: EVEROLIMUS
     Indication: RENAL CANCER
     Route: 048
     Dates: start: 20161227, end: 20171012
  5. LENVIMA [Suspect]
     Active Substance: LENVATINIB
     Route: 048
     Dates: start: 20170204, end: 201703
  6. LENVIMA [Suspect]
     Active Substance: LENVATINIB
     Route: 048
     Dates: start: 20171030
  7. LENVIMA [Suspect]
     Active Substance: LENVATINIB
     Indication: RENAL CELL CARCINOMA
     Route: 048
     Dates: start: 20161227, end: 20161228
  8. LENVIMA [Suspect]
     Active Substance: LENVATINIB
     Route: 048
     Dates: start: 20170321, end: 201704
  9. LENVIMA [Suspect]
     Active Substance: LENVATINIB
     Route: 048
     Dates: start: 201705, end: 201708

REACTIONS (20)
  - Abdominal pain [Recovered/Resolved]
  - Thrombosis [Not Recovered/Not Resolved]
  - Nausea [Recovering/Resolving]
  - Blood pressure increased [Recovering/Resolving]
  - Seizure [Not Recovered/Not Resolved]
  - Headache [Recovered/Resolved]
  - Photopsia [Recovered/Resolved]
  - Blood magnesium decreased [Unknown]
  - Hepatic enzyme increased [Recovering/Resolving]
  - Vomiting [Recovered/Resolved]
  - Arthralgia [Unknown]
  - Sinusitis [Recovered/Resolved]
  - Anxiety [Unknown]
  - Aspartate aminotransferase increased [Not Recovered/Not Resolved]
  - Fatigue [Not Recovered/Not Resolved]
  - Myalgia [Recovering/Resolving]
  - Diarrhoea [Recovering/Resolving]
  - Constipation [Recovered/Resolved]
  - Pancreatic enzymes increased [Recovered/Resolved]
  - Nodule [Unknown]

NARRATIVE: CASE EVENT DATE: 20161227
